FAERS Safety Report 5912309-0 (Version None)
Quarter: 2008Q4

REPORT INFORMATION
  Report Type: 
  Country: None (occurrence: None)
  Receive Date: 20081008
  Receipt Date: 20080908
  Transmission Date: 20090506
  Serious: Yes (Disabling)
  Sender: FDA-Public Use
  Company Number: NO-ROCHE-512940

PATIENT
  Sex: Female

DRUGS (5)
  1. PEGASYS [Suspect]
     Dosage: FORMULATION = PFS
     Route: 058
     Dates: start: 20030601, end: 20030612
  2. COPEGUS [Suspect]
     Route: 048
     Dates: start: 20030601, end: 20030612
  3. PARALGIN FORTE [Concomitant]
     Indication: PAIN
     Dosage: DOSING REGIMEN REPORTED AS 0-6/ 1 DAY
     Route: 048
     Dates: start: 19930101
  4. TRAMAGETIC [Concomitant]
     Indication: PAIN
     Dosage: FORMULATION REPORTED AS DEPOT TABLETS.
     Route: 048
     Dates: start: 20020101, end: 20040101
  5. DURAGESIC-100 [Concomitant]
     Indication: PAIN
     Dosage: FORMULATION REPORTED AS ADHESIVE.
     Route: 023
     Dates: start: 20060601

REACTIONS (16)
  - ASTHENIA [None]
  - COLD SWEAT [None]
  - GASTROINTESTINAL MOTILITY DISORDER [None]
  - HEART RATE INCREASED [None]
  - MALAISE [None]
  - MUSCLE TWITCHING [None]
  - MYALGIA [None]
  - NERVOUSNESS [None]
  - PALPITATIONS [None]
  - POST VIRAL FATIGUE SYNDROME [None]
  - PYREXIA [None]
  - RASH PAPULAR [None]
  - SINUSITIS [None]
  - STRESS [None]
  - THROMBOCYTOPENIA [None]
  - WEIGHT DECREASED [None]
